FAERS Safety Report 23626869 (Version 3)
Quarter: 2024Q3

REPORT INFORMATION
  Report Type: Report from Study
  Country: CA (occurrence: CA)
  Receive Date: 20240313
  Receipt Date: 20240709
  Transmission Date: 20241017
  Serious: Yes (Other)
  Sender: PFIZER
  Company Number: CA-PFIZER INC-202400059392

PATIENT
  Age: 7 Year
  Sex: Male
  Weight: 31 kg

DRUGS (32)
  1. BACTERIOSTATIC SODIUM CHLORIDE [Suspect]
     Active Substance: SODIUM CHLORIDE
     Dosage: 100 ML
     Route: 065
  2. ELAPRASE [Suspect]
     Active Substance: IDURSULFASE
     Indication: Mucopolysaccharidosis II
     Dosage: 3 DF, WEEKLY
     Route: 050
  3. ELAPRASE [Suspect]
     Active Substance: IDURSULFASE
     Dosage: 3 DF, WEEKLY
     Route: 050
  4. ELAPRASE [Suspect]
     Active Substance: IDURSULFASE
     Dosage: 16.3 MG, WEEKLY
     Route: 050
  5. ELAPRASE [Suspect]
     Active Substance: IDURSULFASE
     Dosage: 16.5 MG, WEEKLY
     Route: 050
  6. ELAPRASE [Suspect]
     Active Substance: IDURSULFASE
     Dosage: 3 DF,WEEKLY
     Route: 042
  7. ELAPRASE [Suspect]
     Active Substance: IDURSULFASE
     Dosage: 16.15 MG, WEEKLY
     Route: 042
  8. ELAPRASE [Suspect]
     Active Substance: IDURSULFASE
     Dosage: 3 DF, WEEKLY
     Route: 042
  9. ELAPRASE [Suspect]
     Active Substance: IDURSULFASE
     Dosage: 16.3 MG, WEEKLY
     Route: 050
  10. ELAPRASE [Suspect]
     Active Substance: IDURSULFASE
     Dosage: 3 DF,WEEKLY
     Route: 042
  11. ELAPRASE [Suspect]
     Active Substance: IDURSULFASE
     Dosage: 16.5 MG,WEEKLY
     Route: 042
  12. ELAPRASE [Suspect]
     Active Substance: IDURSULFASE
     Dosage: 3 DF,WEEKLY
     Route: 042
  13. ELAPRASE [Suspect]
     Active Substance: IDURSULFASE
     Dosage: 16.15 MG,WEEKLY
     Route: 050
  14. ELAPRASE [Suspect]
     Active Substance: IDURSULFASE
     Dosage: 16.5 MG, WEEKLY
     Route: 050
  15. ELAPRASE [Suspect]
     Active Substance: IDURSULFASE
     Dosage: 15.8 MG, WEEKLY
     Route: 042
  16. ELAPRASE [Suspect]
     Active Substance: IDURSULFASE
     Dosage: 3 DF, WEEKLY
     Route: 050
  17. ELAPRASE [Suspect]
     Active Substance: IDURSULFASE
     Dosage: UNK,WEEKLY
     Route: 042
  18. ELAPRASE [Suspect]
     Active Substance: IDURSULFASE
     Dosage: 16.3 MG, WEEKLY
     Route: 050
  19. ELAPRASE [Suspect]
     Active Substance: IDURSULFASE
     Dosage: 15.5 MG, WEEKLY
     Route: 042
  20. ELAPRASE [Suspect]
     Active Substance: IDURSULFASE
     Dosage: 3 DF,WEEKLY
     Route: 042
  21. ELAPRASE [Suspect]
     Active Substance: IDURSULFASE
     Dosage: 3 DF, WEEKLY
     Route: 050
  22. ELAPRASE [Suspect]
     Active Substance: IDURSULFASE
     Dosage: 16.6 MG, WEEKLY
     Route: 050
  23. ELAPRASE [Suspect]
     Active Substance: IDURSULFASE
     Dosage: 16.6 MG, WEEKLY
     Route: 050
  24. ELAPRASE [Suspect]
     Active Substance: IDURSULFASE
     Dosage: UNK
     Route: 042
  25. ELAPRASE [Suspect]
     Active Substance: IDURSULFASE
     Dosage: 16.6 MG, WEEKLY
     Route: 050
  26. ELAPRASE [Suspect]
     Active Substance: IDURSULFASE
     Dosage: 16.6 MG, WEEKLY
     Route: 050
  27. ELAPRASE [Suspect]
     Active Substance: IDURSULFASE
     Dosage: 3 DF, WEEKLY
     Route: 065
  28. ELAPRASE [Suspect]
     Active Substance: IDURSULFASE
     Indication: Mucopolysaccharidosis II
     Dosage: 0.5 MG/KG
     Route: 042
  29. ELAPRASE [Suspect]
     Active Substance: IDURSULFASE
     Dosage: 18 MG, WEEKLY
     Route: 065
  30. BENADRYL [Concomitant]
     Active Substance: DIPHENHYDRAMINE HYDROCHLORIDE
     Route: 065
  31. DIPHENHYDRAMINE [Concomitant]
     Active Substance: DIPHENHYDRAMINE
     Dosage: 25 MG
     Route: 048
  32. TYLENOL [Concomitant]
     Active Substance: ACETAMINOPHEN
     Route: 065

REACTIONS (38)
  - Catheter site bruise [Not Recovered/Not Resolved]
  - Catheter site discolouration [Not Recovered/Not Resolved]
  - Catheter site haemorrhage [Not Recovered/Not Resolved]
  - Infusion site bruising [Not Recovered/Not Resolved]
  - Infusion site haemorrhage [Not Recovered/Not Resolved]
  - Behaviour disorder [Not Recovered/Not Resolved]
  - COVID-19 [Not Recovered/Not Resolved]
  - Contusion [Not Recovered/Not Resolved]
  - Cough [Not Recovered/Not Resolved]
  - Deafness [Not Recovered/Not Resolved]
  - Drug resistance [Not Recovered/Not Resolved]
  - Ear infection [Not Recovered/Not Resolved]
  - Ear pain [Not Recovered/Not Resolved]
  - Fatigue [Not Recovered/Not Resolved]
  - Gait disturbance [Not Recovered/Not Resolved]
  - Insomnia [Not Recovered/Not Resolved]
  - Irritability [Not Recovered/Not Resolved]
  - Moaning [Not Recovered/Not Resolved]
  - Nasal congestion [Not Recovered/Not Resolved]
  - Otorrhoea [Not Recovered/Not Resolved]
  - Pain in extremity [Not Recovered/Not Resolved]
  - Patient uncooperative [Not Recovered/Not Resolved]
  - Poor quality sleep [Not Recovered/Not Resolved]
  - Poor venous access [Not Recovered/Not Resolved]
  - Respiratory rate decreased [Not Recovered/Not Resolved]
  - Restlessness [Not Recovered/Not Resolved]
  - Skin discolouration [Not Recovered/Not Resolved]
  - Tendon disorder [Not Recovered/Not Resolved]
  - Device issue [Not Recovered/Not Resolved]
  - Drug delivery system issue [Not Recovered/Not Resolved]
  - Mobility decreased [Not Recovered/Not Resolved]
  - Aggression [Not Recovered/Not Resolved]
  - Agitation [Not Recovered/Not Resolved]
  - Grimacing [Not Recovered/Not Resolved]
  - Heart rate increased [Not Recovered/Not Resolved]
  - Inappropriate schedule of product administration [Not Recovered/Not Resolved]
  - Incorrect dose administered [Not Recovered/Not Resolved]
  - Recalled product administered [Not Recovered/Not Resolved]
